FAERS Safety Report 21856832 (Version 2)
Quarter: 2023Q2

REPORT INFORMATION
  Report Type: Report from Study
  Country: US (occurrence: US)
  Receive Date: 20230113
  Receipt Date: 20230411
  Transmission Date: 20230721
  Serious: No
  Sender: FDA-Public Use
  Company Number: US-ABBVIE-4233806

PATIENT
  Age: 68 Year
  Sex: Female

DRUGS (2)
  1. HUMIRA [Suspect]
     Active Substance: ADALIMUMAB
     Indication: Product used for unknown indication
     Route: 058
  2. SKYRIZI [Suspect]
     Active Substance: RISANKIZUMAB-RZAA
     Indication: Psoriasis
     Route: 058
     Dates: start: 202102

REACTIONS (4)
  - Aspartate aminotransferase increased [Recovering/Resolving]
  - Psoriasis [Unknown]
  - Platelet count decreased [Recovering/Resolving]
  - Blood triglycerides decreased [Recovering/Resolving]

NARRATIVE: CASE EVENT DATE: 20221208
